FAERS Safety Report 7170966-8 (Version None)
Quarter: 2010Q4

REPORT INFORMATION
  Report Type: 
  Country: None (occurrence: None)
  Receive Date: 20101206
  Receipt Date: 20101119
  Transmission Date: 20110411
  Serious: Yes (Other)
  Sender: FDA-Public Use
  Company Number: 022828

PATIENT
  Sex: Female

DRUGS (2)
  1. LACOSAMIDE [Suspect]
     Indication: PARTIAL SEIZURES
     Dosage: ORAL
     Route: 048
     Dates: start: 20100108, end: 20100108
  2. CLORAZEPIC ACID [Concomitant]

REACTIONS (13)
  - APATHY [None]
  - CHEST DISCOMFORT [None]
  - CRYING [None]
  - DEPRESSION [None]
  - DIZZINESS [None]
  - EUPHORIC MOOD [None]
  - HEART RATE DECREASED [None]
  - HEART RATE IRREGULAR [None]
  - LETHARGY [None]
  - PULSE PRESSURE DECREASED [None]
  - SOMNOLENCE [None]
  - SUICIDAL IDEATION [None]
  - UNEVALUABLE EVENT [None]
